FAERS Safety Report 10586784 (Version 1)
Quarter: 2014Q4

REPORT INFORMATION
  Report Type: Spontaneous
  Country: US (occurrence: US)
  Receive Date: 20141117
  Receipt Date: 20141117
  Transmission Date: 20150529
  Serious: No
  Sender: FDA-Public Use
  Company Number: US-GLAXOSMITHKLINE-US2014GSK020444

PATIENT
  Age: 65 Year
  Sex: Male

DRUGS (1)
  1. REQUIP XL [Suspect]
     Active Substance: ROPINIROLE HYDROCHLORIDE
     Indication: PARKINSON^S DISEASE
     Dosage: 12 MG, U
     Dates: start: 1997

REACTIONS (1)
  - Surgery [Unknown]

NARRATIVE: CASE EVENT DATE: 201411
